FAERS Safety Report 12635956 (Version 3)
Quarter: 2016Q4

REPORT INFORMATION
  Report Type: Report from Study
  Country: FR (occurrence: FR)
  Receive Date: 20160809
  Receipt Date: 20161014
  Transmission Date: 20170207
  Serious: Yes (Other)
  Sender: FDA-Public Use
  Company Number: FR-ROCHE-1789735

PATIENT
  Age: 52 Year
  Sex: Female
  Weight: 54 kg

DRUGS (8)
  1. PERTUZUMAB [Suspect]
     Active Substance: PERTUZUMAB
     Dosage: DATE FO LAST DOSE PRIOR TO SAE: 13/JUN/2016
     Route: 042
     Dates: start: 20160613
  2. TRASTUZUMAB [Suspect]
     Active Substance: TRASTUZUMAB
     Dosage: DATE OF LAST DOSE PRIOR TO SAE: 13/JUN/2016
     Route: 042
     Dates: start: 20160613
  3. COTAREG [Concomitant]
     Active Substance: HYDROCHLOROTHIAZIDE\VALSARTAN
     Route: 048
  4. DOCETAXEL. [Suspect]
     Active Substance: DOCETAXEL
     Indication: HER-2 POSITIVE BREAST CANCER
     Dosage: DATE OF LAST DOSE (170 MG) PRIOR TO SAE: 13/JUN/2016?CUMULATIVE DOSE: 385 MG
     Route: 042
     Dates: start: 20160523
  5. STILNOX [Concomitant]
     Active Substance: ZOLPIDEM TARTRATE
     Route: 048
  6. CARBOPLATIN. [Suspect]
     Active Substance: CARBOPLATIN
     Indication: HER-2 POSITIVE BREAST CANCER
     Dosage: DATE OF LAST DOSE (600 MG) PRIOR TO SAE: 13/JUN/2016?CUMULATIVE DOSE: 1740 MG
     Route: 042
     Dates: start: 20160523
  7. PERTUZUMAB [Suspect]
     Active Substance: PERTUZUMAB
     Indication: HER-2 POSITIVE BREAST CANCER
     Dosage: CUMULATIVE DOSE: 1680 MG
     Route: 042
     Dates: start: 20160523
  8. TRASTUZUMAB [Suspect]
     Active Substance: TRASTUZUMAB
     Indication: HER-2 POSITIVE BREAST CANCER
     Dosage: CUMULATIVE DOSE: 1090 MG
     Route: 042
     Dates: start: 20160523

REACTIONS (1)
  - Gamma-glutamyltransferase increased [Not Recovered/Not Resolved]

NARRATIVE: CASE EVENT DATE: 20160701
